FAERS Safety Report 6321572-6 (Version None)
Quarter: 2009Q3

REPORT INFORMATION
  Report Type: 
  Country: None (occurrence: None)
  Receive Date: 20090824
  Receipt Date: 20070531
  Transmission Date: 20100115
  Serious: Yes (Other)
  Sender: FDA-Public Use
  Company Number: US-ASTRAZENECA-2006UW11964

PATIENT
  Age: 17347 Day
  Sex: Female
  Weight: 86.2 kg

DRUGS (15)
  1. SEROQUEL [Suspect]
     Dosage: 100-200 MG EVERY NIGHT
     Route: 048
     Dates: start: 20010510
  2. ABILIFY [Concomitant]
  3. CLOZARIL [Concomitant]
  4. RISPERDAL [Concomitant]
  5. THORAZINE [Concomitant]
  6. ATIVAN [Concomitant]
     Dosage: 2.0-4.0 MG EVERY DAY
     Dates: start: 20010510
  7. WELLBUTRIN [Concomitant]
     Dates: start: 20010510
  8. NORVASC [Concomitant]
     Dates: start: 20010510
  9. HYDROCHLOROTHIAZIDE [Concomitant]
     Dates: start: 20010510
  10. TRAZODONE HCL [Concomitant]
     Dates: start: 20010510
  11. ASPIRIN [Concomitant]
  12. LOPRESSOR [Concomitant]
     Dates: start: 20010904
  13. ZOCOR [Concomitant]
     Dates: start: 20010904
  14. IMDUR [Concomitant]
     Dates: start: 20010904
  15. NITROGLYCERIN [Concomitant]
     Dosage: 0.3
     Dates: start: 20030903

REACTIONS (4)
  - DIABETES MELLITUS [None]
  - DIABETES MELLITUS INADEQUATE CONTROL [None]
  - DIABETIC NEUROPATHY [None]
  - TYPE 2 DIABETES MELLITUS [None]
